FAERS Safety Report 5807809-8 (Version None)
Quarter: 2008Q3

REPORT INFORMATION
  Report Type: 
  Country: None (occurrence: None)
  Receive Date: 20080711
  Receipt Date: 20080708
  Transmission Date: 20090109
  Serious: Yes (Death)
  Sender: FDA-Public Use
  Company Number: DE-BOEHRINGER INGELHEIM GMBH, GERMANY-2008-DE-03928DE

PATIENT
  Age: 90 Year
  Sex: Female

DRUGS (1)
  1. SIFROL [Suspect]
     Indication: RESTLESS LEGS SYNDROME

REACTIONS (1)
  - DEATH [None]
